FAERS Safety Report 5810294-3 (Version None)
Quarter: 2008Q3

REPORT INFORMATION
  Report Type: 
  Country: None (occurrence: None)
  Receive Date: 20080715
  Receipt Date: 20080303
  Transmission Date: 20090109
  Serious: No
  Sender: FDA-Public Use
  Company Number: A0712959A

PATIENT
  Age: 35 Year
  Sex: Male

DRUGS (3)
  1. IMITREX [Suspect]
     Indication: MIGRAINE
     Dosage: 100MG SINGLE DOSE
     Route: 048
     Dates: start: 20080229
  2. IMITREX [Concomitant]
  3. PRILOSEC [Concomitant]

REACTIONS (1)
  - DRUG INEFFECTIVE [None]
